FAERS Safety Report 6657899-8 (Version None)
Quarter: 2010Q1

REPORT INFORMATION
  Report Type: 
  Country: None (occurrence: None)
  Receive Date: 20100330
  Receipt Date: 20100318
  Transmission Date: 20100710
  Serious: Yes (Other)
  Sender: FDA-Public Use
  Company Number: DE-ROCHE-693406

PATIENT
  Sex: Female

DRUGS (2)
  1. AVASTIN [Suspect]
     Route: 065
     Dates: start: 20081101
  2. FOLFIRI REGIMEN [Concomitant]

REACTIONS (1)
  - ABDOMINAL HERNIA [None]
